FAERS Safety Report 15496566 (Version 1)
Quarter: 2018Q4

REPORT INFORMATION
  Report Type: Report from Study
  Country: None (occurrence: CA)
  Receive Date: 20181013
  Receipt Date: 20181013
  Transmission Date: 20190205
  Serious: Yes (Other)
  Sender: FDA-Public Use
  Company Number: CA-ABBVIE-18K-028-2517675-00

PATIENT
  Age: 71 Year
  Sex: Male

DRUGS (1)
  1. HUMIRA [Suspect]
     Active Substance: ADALIMUMAB
     Indication: COLITIS ULCERATIVE
     Route: 058
     Dates: start: 20160920

REACTIONS (3)
  - Intestinal obstruction [Recovered/Resolved]
  - Gastroenteritis viral [Not Recovered/Not Resolved]
  - Gastrointestinal scarring [Recovered/Resolved]

NARRATIVE: CASE EVENT DATE: 201809
